FAERS Safety Report 9795728 (Version 3)
Quarter: 2014Q1

REPORT INFORMATION
  Report Type: Report from Study
  Country: NL (occurrence: NL)
  Receive Date: 20140103
  Receipt Date: 20140124
  Transmission Date: 20141002
  Serious: Yes (Death, Hospitalization)
  Sender: FDA-Public Use
  Company Number: PHHY2013NL151639

PATIENT
  Sex: Male

DRUGS (5)
  1. ZOMETA [Suspect]
     Indication: PROSTATE CANCER METASTATIC
     Dosage: 4 MG, ONCE PER 4 WEEKS
     Route: 042
  2. ZOMETA [Suspect]
     Dosage: 4 MG, ONCE PER 4 WEEKS
     Route: 042
     Dates: start: 20130822
  3. ZOMETA [Suspect]
     Dosage: 4 MG, ONCE PER 4 WEEKS
     Route: 042
     Dates: start: 20131118
  4. ZOMETA [Suspect]
     Dosage: 4 MG, ONCE PER 4 WEEKS
     Route: 042
     Dates: start: 20131223
  5. ZOMETA [Suspect]
     Dosage: 4 MG, ONCE PER 4 WEEKS
     Route: 042
     Dates: start: 20140121

REACTIONS (6)
  - Prostate cancer metastatic [Fatal]
  - Malignant neoplasm progression [Fatal]
  - Diaphragmatic rupture [Unknown]
  - Dehydration [Unknown]
  - Diarrhoea [Not Recovered/Not Resolved]
  - Vomiting [Unknown]
